FAERS Safety Report 9519171 (Version 2)
Quarter: 2014Q1

REPORT INFORMATION
  Report Type: Report from Study
  Country: JP (occurrence: JP)
  Receive Date: 20130912
  Receipt Date: 20140220
  Transmission Date: 20141002
  Serious: Yes (Hospitalization)
  Sender: FDA-Public Use
  Company Number: JP-JNJFOC-20130903321

PATIENT
  Age: 77 Year
  Sex: Female
  Weight: 54 kg

DRUGS (10)
  1. SIMPONI [Suspect]
     Indication: RHEUMATOID ARTHRITIS
     Route: 058
     Dates: start: 20120709
  2. SIMPONI [Suspect]
     Indication: RHEUMATOID ARTHRITIS
     Route: 058
     Dates: start: 20120130, end: 20120130
  3. SIMPONI [Suspect]
     Indication: RHEUMATOID ARTHRITIS
     Route: 058
     Dates: start: 20120326, end: 20120326
  4. METHOTREXATE [Suspect]
     Indication: RHEUMATOID ARTHRITIS
     Route: 065
     Dates: start: 20120611
  5. TACROLIMUS HYDRATE [Suspect]
     Indication: RHEUMATOID ARTHRITIS
     Route: 065
  6. CELECOX [Concomitant]
     Indication: RHEUMATOID ARTHRITIS
     Route: 048
  7. TAKEPRON [Concomitant]
     Indication: PROPHYLAXIS
     Route: 048
  8. ASPARA CA [Concomitant]
     Indication: OSTEOPOROSIS
     Route: 048
  9. FORTEO [Concomitant]
     Indication: OSTEOPOROSIS
     Route: 058
  10. SOLITA-T NO.2 [Concomitant]
     Route: 065

REACTIONS (2)
  - Pyelonephritis [Recovered/Resolved]
  - Dehydration [Recovered/Resolved]
